FAERS Safety Report 7285408-1 (Version None)
Quarter: 2011Q1

REPORT INFORMATION
  Report Type: 
  Country: None (occurrence: None)
  Receive Date: 20110121
  Receipt Date: 20060213
  Transmission Date: 20110831
  Serious: No
  Sender: FDA-Public Use
  Company Number: 038

PATIENT
  Sex: Male

DRUGS (1)
  1. FAZACLO ODT [Suspect]
     Indication: SCHIZOPHRENIA
     Dosage: 350 MG PO DAILY
     Route: 048
     Dates: start: 20051123, end: 20051225

REACTIONS (1)
  - SUPRAVENTRICULAR TACHYCARDIA [None]
